FAERS Safety Report 16785852 (Version 9)
Quarter: 2022Q1

REPORT INFORMATION
  Report Type: Spontaneous
  Country: US (occurrence: US)
  Receive Date: 20190909
  Receipt Date: 20220329
  Transmission Date: 20220423
  Serious: No
  Sender: FDA-Public Use
  Company Number: US-PFIZER INC-2019388756

PATIENT
  Age: 49 Year
  Sex: Female
  Weight: 90.72 kg

DRUGS (2)
  1. LYRICA [Suspect]
     Active Substance: PREGABALIN
     Indication: Hereditary motor and sensory neuropathy
     Dosage: 375 MG, DAILY (2 CAPSULES IN THE AM AND 3 AT BEDTIME)
     Route: 048
     Dates: start: 2014
  2. LYRICA [Suspect]
     Active Substance: PREGABALIN
     Indication: Muscular dystrophy
     Dosage: 300 MG, 2X/DAY (300 MG 1 CAPSULE ORALLY 2 TIMES A DAY)
     Route: 048

REACTIONS (8)
  - Off label use [Unknown]
  - Overdose [Unknown]
  - Intentional product use issue [Unknown]
  - Withdrawal syndrome [Unknown]
  - Gait disturbance [Unknown]
  - Hyperhidrosis [Not Recovered/Not Resolved]
  - Sensitivity to weather change [Unknown]
  - Pain [Unknown]

NARRATIVE: CASE EVENT DATE: 20190101
